FAERS Safety Report 7183567-2 (Version None)
Quarter: 2010Q4

REPORT INFORMATION
  Report Type: 
  Country: None (occurrence: None)
  Receive Date: 20101220
  Receipt Date: 20101220
  Transmission Date: 20110411
  Serious: Yes (Life-Threatening, Disabling)
  Sender: FDA-Public Use
  Company Number: None

PATIENT
  Age: 81 Year
  Sex: Male
  Weight: 91.4 kg

DRUGS (1)
  1. RITUXAN [Suspect]
     Dosage: Q3MONTHS X1WK IV
     Route: 042
     Dates: start: 20100101, end: 20101101

REACTIONS (5)
  - HEPATIC FAILURE [None]
  - HEPATORENAL SYNDROME [None]
  - PERFORMANCE STATUS DECREASED [None]
  - RENAL FAILURE [None]
  - SINUSITIS [None]
